FAERS Safety Report 15302193 (Version 1)
Quarter: 2018Q3

REPORT INFORMATION
  Report Type: Spontaneous
  Country: ES (occurrence: ES)
  Receive Date: 20180821
  Receipt Date: 20180821
  Transmission Date: 20181010
  Serious: Yes (Hospitalization)
  Sender: FDA-Public Use
  Company Number: ES-BAYER-2018-154734

PATIENT
  Age: 81 Year
  Sex: Female

DRUGS (6)
  1. ADIRO 100 MG [Suspect]
     Active Substance: ASPIRIN
     Route: 048
     Dates: start: 20171207, end: 20180111
  2. DOXAZOSIN [Concomitant]
     Active Substance: DOXAZOSIN\DOXAZOSIN MESYLATE
     Dosage: UNK
  3. SINTROM [Interacting]
     Active Substance: ACENOCOUMAROL
     Route: 048
     Dates: start: 20160108, end: 20160111
  4. ATORVASTATIN [Concomitant]
     Active Substance: ATORVASTATIN
     Dosage: UNK
  5. EMCONCOR [Concomitant]
     Active Substance: BISOPROLOL FUMARATE
     Dosage: UNK
  6. ENALAPRIL [Concomitant]
     Active Substance: ENALAPRIL
     Dosage: UNK

REACTIONS (2)
  - Abdominal wall haematoma [Recovered/Resolved]
  - Hypocoagulable state [Recovered/Resolved]

NARRATIVE: CASE EVENT DATE: 20180111
